FAERS Safety Report 6170794-6 (Version None)
Quarter: 2009Q2

REPORT INFORMATION
  Report Type: 
  Country: None (occurrence: None)
  Receive Date: 20090427
  Receipt Date: 20090420
  Transmission Date: 20091009
  Serious: Yes (Other)
  Sender: FDA-Public Use
  Company Number: CHPA2009US10001

PATIENT
  Age: 84 Year
  Sex: Male

DRUGS (2)
  1. BENEFIBER W/WHEAT DEXTRIN (NCH) (WHEAT DEXTRIN) POWDER [Suspect]
     Indication: GASTROINTESTINAL MOTILITY DISORDER
     Dosage: 2 TSP, ONCE A DAY, ORAL
     Route: 048
  2. ALL OTHER THERAPEUTIC PRODUCTS (NO INGREDIENTS/SUBSTANCES) [Concomitant]

REACTIONS (2)
  - ARTERIAL STENT INSERTION [None]
  - DRUG INEFFECTIVE [None]
